FAERS Safety Report 4307266-7 (Version None)
Quarter: 2004Q1

REPORT INFORMATION
  Report Type: 
  Country: None (occurrence: None)
  Receive Date: 20040227
  Receipt Date: 20021014
  Transmission Date: 20041129
  Serious: Yes (Hospitalization, Disabling)
  Sender: FDA-Public Use
  Company Number: WAES 0210AUS00119

PATIENT
  Age: 70 Year
  Sex: Female

DRUGS (7)
  1. ALLOPURINOL [Concomitant]
  2. ASPIRIN [Concomitant]
  3. CAPTOPRIL [Concomitant]
  4. DILTIAZEM HYDROCHLORIDE [Suspect]
  5. FUROSEMIDE [Concomitant]
  6. INSULIN [Concomitant]
     Indication: DIABETES MELLITUS
  7. SIMVASTATIN [Suspect]

REACTIONS (14)
  - ASTHENIA [None]
  - BLOOD CREATINE PHOSPHOKINASE INCREASED [None]
  - DEHYDRATION [None]
  - DRUG INTERACTION [None]
  - HYPOREFLEXIA [None]
  - MYOGLOBINURIA [None]
  - MYOPATHY [None]
  - NEUROPATHY PERIPHERAL [None]
  - POLYNEUROPATHY [None]
  - RENAL IMPAIRMENT [None]
  - RHABDOMYOLYSIS [None]
  - SENSORY DISTURBANCE [None]
  - URINARY TRACT INFECTION [None]
  - URINE ANALYSIS ABNORMAL [None]
